FAERS Safety Report 20574187 (Version 1)
Quarter: 2022Q1

REPORT INFORMATION
  Report Type: Spontaneous
  Country: FR (occurrence: FR)
  Receive Date: 20220309
  Receipt Date: 20220309
  Transmission Date: 20220423
  Serious: Yes (Hospitalization)
  Sender: FDA-Public Use
  Company Number: None

PATIENT
  Age: 25 Year
  Sex: Female

DRUGS (3)
  1. ALPRAZOLAM [Suspect]
     Active Substance: ALPRAZOLAM
     Dosage: UNK UNK, DAILY (UP TO 7 MG)
     Route: 048
     Dates: start: 2019, end: 20210422
  2. TOBACCO LEAF [Suspect]
     Active Substance: TOBACCO LEAF
     Dosage: UNK, DAILY (2-3 CIGARETTES)
     Route: 055
     Dates: start: 2008
  3. CANNABIS SATIVA SUBSP. INDICA TOP [Suspect]
     Active Substance: CANNABIS SATIVA SUBSP. INDICA TOP
     Dosage: UNK, DAILY (UP TO 15 JOINTS)
     Route: 055
     Dates: start: 2008, end: 20210422

REACTIONS (6)
  - Pregnancy [Recovering/Resolving]
  - Drug abuse [Recovering/Resolving]
  - Memory impairment [Recovered/Resolved]
  - Hyperhidrosis [Recovered/Resolved]
  - Withdrawal syndrome [Recovered/Resolved]
  - Tremor [Recovered/Resolved]

NARRATIVE: CASE EVENT DATE: 20080101
